FAERS Safety Report 6992868-X (Version None)
Quarter: 2010Q3

REPORT INFORMATION
  Report Type: 
  Country: None (occurrence: None)
  Receive Date: 20100917
  Receipt Date: 20100916
  Transmission Date: 20110219
  Serious: Yes (Hospitalization)
  Sender: FDA-Public Use
  Company Number: B0674092A

PATIENT
  Sex: Male

DRUGS (5)
  1. CLAMOXYL [Suspect]
     Dosage: 1G PER DAY
     Route: 048
     Dates: start: 20100511, end: 20100516
  2. CELESTONE [Suspect]
     Indication: TONSILLITIS
     Dosage: 6MG IN THE MORNING
     Route: 048
     Dates: start: 20100511, end: 20100513
  3. ESIDRIX [Concomitant]
     Dosage: 25MG PER DAY
     Route: 048
  4. TRIATEC [Concomitant]
     Dosage: 10MG PER DAY
     Route: 048
  5. ACTRAPID [Concomitant]
     Route: 065

REACTIONS (7)
  - ABDOMINAL PAIN [None]
  - DEPRESSED LEVEL OF CONSCIOUSNESS [None]
  - HEADACHE [None]
  - HYPERGLYCAEMIA [None]
  - PANCREATITIS ACUTE [None]
  - PLEURAL EFFUSION [None]
  - VOMITING PROJECTILE [None]
